FAERS Safety Report 9356829 (Version 2)
Quarter: 2013Q2

REPORT INFORMATION
  Report Type: Spontaneous
  Country: US (occurrence: US)
  Receive Date: 20130620
  Receipt Date: 20130621
  Transmission Date: 20140414
  Serious: No
  Sender: FDA-Public Use
  Company Number: US-009507513-1306USA006569

PATIENT
  Sex: Female

DRUGS (1)
  1. DULERA [Suspect]
     Indication: DYSPNOEA
     Dosage: UNK
     Route: 055
     Dates: start: 20130512

REACTIONS (2)
  - Drug dose omission [Unknown]
  - Product quality issue [Unknown]
